FAERS Safety Report 12543439 (Version 1)
Quarter: 2016Q3

REPORT INFORMATION
  Report Type: Spontaneous
  Country: US (occurrence: US)
  Receive Date: 20160711
  Receipt Date: 20160711
  Transmission Date: 20161109
  Serious: No
  Sender: FDA-Public Use
  Company Number: US-TEVA-617631USA

PATIENT
  Sex: Female
  Weight: 90.8 kg

DRUGS (2)
  1. VENLAFAXINE ER [Suspect]
     Active Substance: VENLAFAXINE HYDROCHLORIDE
     Route: 065
     Dates: start: 20151129, end: 20151206
  2. VENLAFAXINE ER [Suspect]
     Active Substance: VENLAFAXINE HYDROCHLORIDE
     Indication: OBSESSIVE-COMPULSIVE DISORDER
     Route: 065
     Dates: start: 2014, end: 20151128

REACTIONS (7)
  - Vision blurred [Unknown]
  - Hyperhidrosis [Unknown]
  - Insomnia [Unknown]
  - Myalgia [Unknown]
  - Headache [Unknown]
  - Musculoskeletal pain [Unknown]
  - Neck pain [Unknown]
